FAERS Safety Report 11363337 (Version 1)
Quarter: 2015Q3

REPORT INFORMATION
  Report Type: Spontaneous
  Country: US (occurrence: US)
  Receive Date: 20150811
  Receipt Date: 20150811
  Transmission Date: 20151125
  Serious: No
  Sender: FDA-Public Use
  Company Number: US-TEVA-565910USA

PATIENT
  Sex: Female
  Weight: 62.65 kg

DRUGS (1)
  1. CELECOXIB. [Suspect]
     Active Substance: CELECOXIB
     Indication: ARTHRITIS
     Route: 065
     Dates: start: 20150424

REACTIONS (2)
  - Dyspepsia [Unknown]
  - Drug ineffective [Unknown]
